FAERS Safety Report 8807623 (Version 1)
Quarter: 2012Q4

REPORT INFORMATION
  Report Type: 
  Country: KR (occurrence: KR)
  Receive Date: 20120925
  Receipt Date: 20120925
  Transmission Date: 20130627
  Serious: Yes (Hospitalization)
  Sender: FDA-Public Use
  Company Number: KR-NAPPMUNDI-MAG-2012-0002293

PATIENT
  Age: 65 Year
  Sex: Male
  Weight: 68 kg

DRUGS (1)
  1. BUPRENORPHINE [Suspect]
     Indication: PAIN
     Dosage: 5 mcg, q1h
     Route: 062
     Dates: start: 20120912, end: 20120913

REACTIONS (3)
  - Hypothermia [Recovered/Resolved]
  - Vomiting [Recovered/Resolved]
  - Nausea [Recovered/Resolved]
